FAERS Safety Report 9054004 (Version 1)
Quarter: 2013Q1

REPORT INFORMATION
  Report Type: Spontaneous
  Country: US (occurrence: None)
  Receive Date: 20130201
  Receipt Date: 20130201
  Transmission Date: 20140127
  Serious: Yes (Death)
  Sender: FDA-Public Use
  Company Number: None

PATIENT
  Age: 36 Year
  Sex: Female
  Weight: 74.84 kg

DRUGS (15)
  1. NORVIR [Suspect]
     Indication: HIV INFECTION
     Dosage: 100 MG QD ORAL
     Route: 048
     Dates: start: 20100622, end: 20121227
  2. REYATAZ [Suspect]
     Indication: HIV INFECTION
     Dosage: 300 MG QD ORAL
     Route: 048
     Dates: start: 20100622, end: 20121227
  3. EMTRICITABINE\TENOFOVIR [Suspect]
  4. PERCOCET [Concomitant]
  5. AMITRIPTYLINE [Concomitant]
  6. NAPROXEN [Concomitant]
  7. GABAPENTIN [Concomitant]
  8. ASPIRIN [Concomitant]
  9. INSULIN GLARGINE [Concomitant]
  10. INSULIN LISPRO [Concomitant]
  11. HYDROCHLOROTHIAZIDE\LISINOPRIL [Concomitant]
  12. OMEPRAZOLE [Concomitant]
  13. LOPERAMIDE [Concomitant]
  14. TRIAMCINOLONE CREAM [Concomitant]
  15. RISPERDAL (RISPERIDONE) [Concomitant]

REACTIONS (13)
  - Diabetic retinopathy [None]
  - Macular oedema [None]
  - Vitamin D deficiency [None]
  - Glycogen storage disease type I [None]
  - Depression [None]
  - Pelvic inflammatory disease [None]
  - Haemoglobin decreased [None]
  - Drug administration error [None]
  - Fatigue [None]
  - Blood pressure increased [None]
  - Heart rate increased [None]
  - Treatment noncompliance [None]
  - Sudden cardiac death [None]
